FAERS Safety Report 23067794 (Version 1)
Quarter: 2023Q4

REPORT INFORMATION
  Report Type: Report from Study
  Country: US (occurrence: None)
  Receive Date: 20231016
  Receipt Date: 20231016
  Transmission Date: 20240109
  Serious: Yes (Other)
  Sender: FDA-Public Use
  Company Number: 2023A233540

PATIENT
  Sex: Female

DRUGS (1)
  1. CALQUENCE [Suspect]
     Active Substance: ACALABRUTINIB
     Indication: Chronic lymphocytic leukaemia
     Route: 048
     Dates: start: 202308

REACTIONS (5)
  - Dementia [Unknown]
  - Mental disorder [Unknown]
  - General physical health deterioration [Unknown]
  - Intentional product misuse [Unknown]
  - Product dose omission issue [Unknown]
